FAERS Safety Report 7504860-7 (Version None)
Quarter: 2011Q2

REPORT INFORMATION
  Report Type: 
  Country: None (occurrence: None)
  Receive Date: 20110526
  Receipt Date: 20110514
  Transmission Date: 20111010
  Serious: Yes (Hospitalization, Other)
  Sender: FDA-Public Use
  Company Number: IN-PAR PHARMACEUTICAL, INC-2011SCPR002987

PATIENT
  Age: 32 Year
  Sex: Male

DRUGS (3)
  1. DISULFIRAM [Suspect]
     Dosage: 125 MG PER DAY
     Route: 065
  2. DISULFIRAM [Suspect]
     Indication: PRODUCT USED FOR UNKNOWN INDICATION
     Dosage: 250 MG PER DAY
     Route: 065
  3. DISULFIRAM [Suspect]
     Dosage: 500 MG PER DAY

REACTIONS (1)
  - CATATONIA [None]
